FAERS Safety Report 5941535-X (Version None)
Quarter: 2008Q4

REPORT INFORMATION
  Report Type: 
  Country: None (occurrence: None)
  Receive Date: 20081103
  Receipt Date: 20081103
  Transmission Date: 20090506
  Serious: Yes (Other)
  Sender: FDA-Public Use
  Company Number: None

PATIENT
  Age: 43 Year
  Sex: Male
  Weight: 111.1313 kg

DRUGS (2)
  1. LEXAPRO [Suspect]
     Indication: DEPRESSION
     Dosage: 10 MG 1 X DAILY PO
     Route: 048
     Dates: start: 20080720, end: 20081029
  2. PAXIL [Suspect]
     Dosage: 25 MG 1 DAILY PO
     Route: 048
     Dates: start: 20080301, end: 20080501

REACTIONS (2)
  - HOMICIDAL IDEATION [None]
  - THINKING ABNORMAL [None]
